FAERS Safety Report 14075485 (Version 1)
Quarter: 2017Q4

REPORT INFORMATION
  Report Type: Spontaneous
  Country: US (occurrence: US)
  Receive Date: 20171010
  Receipt Date: 20171010
  Transmission Date: 20180321
  Serious: No
  Sender: FDA-Public Use
  Company Number: US-MYLANLABS-2016M1046503

PATIENT
  Sex: Female
  Weight: 54.42 kg

DRUGS (1)
  1. CARBIDOPA AND LEVODOPA EXTENDED-RELEASE TABLETS [Suspect]
     Active Substance: CARBIDOPA\LEVODOPA
     Indication: PARKINSON^S DISEASE
     Dosage: 25 MG/100 MG, QD
     Route: 048

REACTIONS (1)
  - Pruritus [Not Recovered/Not Resolved]
